FAERS Safety Report 7990653-3 (Version None)
Quarter: 2011Q4

REPORT INFORMATION
  Report Type: 
  Country: None (occurrence: None)
  Receive Date: 20111219
  Receipt Date: 20111212
  Transmission Date: 20120403
  Serious: Yes (Death, Hospitalization)
  Sender: FDA-Public Use
  Company Number: IT-ASTRAZENECA-2011SE74707

PATIENT
  Sex: Female

DRUGS (5)
  1. NEXIUM [Concomitant]
     Route: 048
  2. LASIX [Concomitant]
     Route: 048
  3. ASPIRIN [Concomitant]
     Route: 048
  4. CEFTRIAXONE SODIUM [Concomitant]
     Route: 042
  5. ARIMIDEX [Suspect]
     Indication: BREAST CANCER
     Route: 048
     Dates: start: 20111017, end: 20111202

REACTIONS (1)
  - DEEP VEIN THROMBOSIS [None]
